FAERS Safety Report 8176219-3 (Version None)
Quarter: 2012Q1

REPORT INFORMATION
  Report Type: 
  Country: None (occurrence: None)
  Receive Date: 20120301
  Receipt Date: 20120227
  Transmission Date: 20120608
  Serious: Yes (Other)
  Sender: FDA-Public Use
  Company Number: US-JNJFOC-20100806866

PATIENT
  Sex: Female

DRUGS (15)
  1. KETOPROFEN [Concomitant]
     Indication: INFLAMMATION
     Route: 065
  2. CYCLOBENZAPRINE [Concomitant]
     Indication: MUSCLE RELAXANT THERAPY
     Route: 065
  3. NEURONTIN [Concomitant]
     Indication: MUSCLE RELAXANT THERAPY
     Route: 065
  4. CIPRO [Suspect]
     Indication: INFECTION
     Route: 065
  5. SYNTHROID [Concomitant]
     Indication: HYPOTHYROIDISM
     Route: 065
  6. TRAMADOL HCL [Concomitant]
     Indication: INFLAMMATION
     Route: 065
  7. FUROSEMIDE [Concomitant]
     Indication: BLOOD PRESSURE
     Route: 065
  8. LEVAQUIN [Suspect]
     Indication: ABDOMINAL PAIN
     Route: 048
     Dates: start: 20090801, end: 20090901
  9. SKELAXIN [Concomitant]
     Indication: INFLAMMATION
     Route: 065
  10. DIOVAN [Concomitant]
     Indication: BLOOD PRESSURE
     Route: 065
  11. VIOXX [Concomitant]
     Indication: INFLAMMATION
     Route: 065
  12. LEVOXYL [Concomitant]
     Indication: HYPOTHYROIDISM
     Route: 065
  13. ETODOLAC [Concomitant]
     Indication: INFLAMMATION
     Route: 065
  14. METHYLPREDNISOLONE [Suspect]
     Indication: INFLAMMATION
     Route: 065
  15. PREDNISONE TAB [Suspect]
     Indication: INFLAMMATION
     Route: 065

REACTIONS (8)
  - HYPOAESTHESIA [None]
  - BURSITIS [None]
  - TENDON RUPTURE [None]
  - TENDONITIS [None]
  - TENOSYNOVITIS [None]
  - CHEST PAIN [None]
  - MYALGIA [None]
  - ABDOMINAL PAIN UPPER [None]
